FAERS Safety Report 9521844 (Version 1)
Quarter: 2013Q3

REPORT INFORMATION
  Report Type: Report from Study
  Country: US (occurrence: US)
  Receive Date: 20130913
  Receipt Date: 20130913
  Transmission Date: 20140515
  Serious: Yes (Hospitalization, Other)
  Sender: FDA-Public Use
  Company Number: US-ALEXION PHARMACEUTICALS INC.-A201302184

PATIENT
  Sex: Male

DRUGS (2)
  1. SOLIRIS [Suspect]
     Indication: PAROXYSMAL NOCTURNAL HAEMOGLOBINURIA
     Dosage: UNK
     Route: 042
  2. LOVENOX [Concomitant]
     Indication: HEPATIC VEIN THROMBOSIS
     Dosage: UNK

REACTIONS (4)
  - Injury [Recovering/Resolving]
  - Traumatic haemorrhage [Recovered/Resolved]
  - Sensory loss [Unknown]
  - Musculoskeletal disorder [Recovering/Resolving]
